FAERS Safety Report 6284419-2 (Version None)
Quarter: 2009Q3

REPORT INFORMATION
  Report Type: 
  Country: None (occurrence: None)
  Receive Date: 20090727
  Receipt Date: 20090715
  Transmission Date: 20100115
  Serious: Yes (Hospitalization)
  Sender: FDA-Public Use
  Company Number: GR-ROCHE-644026

PATIENT
  Age: 66 Year
  Sex: Male

DRUGS (8)
  1. MIRCERA [Suspect]
     Route: 058
     Dates: start: 20080401
  2. MIRCERA [Suspect]
     Route: 058
     Dates: start: 20090601
  3. MIRCERA [Suspect]
     Route: 058
     Dates: start: 20090601
  4. MIRCERA [Suspect]
     Route: 058
  5. MIRCERA [Suspect]
     Route: 058
     Dates: start: 20090701
  6. IRBESARTAN [Concomitant]
     Indication: HYPERTENSION
     Route: 048
  7. ASACOL [Concomitant]
  8. DIURETIC NOS [Concomitant]

REACTIONS (1)
  - HAEMOLYSIS [None]
